FAERS Safety Report 5899316-1 (Version None)
Quarter: 2008Q3

REPORT INFORMATION
  Report Type: 
  Country: None (occurrence: None)
  Receive Date: 20080909
  Receipt Date: 20080519
  Transmission Date: 20090109
  Serious: Yes (Other)
  Sender: FDA-Public Use
  Company Number: US-WYE-H04176008

PATIENT
  Age: 16 Year
  Sex: Female

DRUGS (1)
  1. ADVIL [Suspect]
     Dosage: 2 LIQUI-GELS X 1, ORAL
     Route: 048
     Dates: start: 20080501, end: 20080501

REACTIONS (3)
  - DYSPNOEA [None]
  - ERYTHEMA [None]
  - SWELLING FACE [None]
